FAERS Safety Report 4396668-9 (Version None)
Quarter: 2004Q3

REPORT INFORMATION
  Report Type: 
  Country: None (occurrence: None)
  Receive Date: 20040713
  Receipt Date: 20040713
  Transmission Date: 20050211
  Serious: Yes (Other)
  Sender: FDA-Public Use
  Company Number: None

PATIENT
  Age: 30 Year
  Sex: Female
  Weight: 47.6277 kg

DRUGS (1)
  1. ULTRAM [Suspect]
     Indication: CYSTITIS INTERSTITIAL
     Dosage: 50 MG ONE DOSE, TWO DOSES Q 6 HRS (PRN)

REACTIONS (2)
  - DRUG INEFFECTIVE [None]
  - PHARMACEUTICAL PRODUCT COMPLAINT [None]
